FAERS Safety Report 9361192 (Version 3)
Quarter: 2013Q3

REPORT INFORMATION
  Report Type: Report from Study
  Country: US (occurrence: US)
  Receive Date: 20130621
  Receipt Date: 20130813
  Transmission Date: 20140515
  Serious: Yes (Other)
  Sender: FDA-Public Use
  Company Number: US-JNJFOC-20130611157

PATIENT
  Sex: Male
  Weight: 113.4 kg

DRUGS (3)
  1. STELARA [Suspect]
     Indication: PSORIASIS
     Route: 058
     Dates: start: 20120622, end: 20120712
  2. METHADONE [Concomitant]
     Indication: PAIN
     Dates: start: 2007
  3. MULTIVITAMINS [Concomitant]
     Indication: GENERAL PHYSICAL CONDITION
     Dates: start: 1985

REACTIONS (4)
  - Skin cancer [Recovering/Resolving]
  - Asthenia [Recovered/Resolved]
  - Nausea [Recovered/Resolved]
  - Malaise [Recovered/Resolved]
